FAERS Safety Report 10011705 (Version 4)
Quarter: 2014Q2

REPORT INFORMATION
  Report Type: Spontaneous
  Country: KR (occurrence: KR)
  Receive Date: 20140314
  Receipt Date: 20140416
  Transmission Date: 20141212
  Serious: Yes (Hospitalization)
  Sender: FDA-Public Use
  Company Number: KR-009507513-1401KOR013245

PATIENT
  Age: 64 Year
  Sex: Male
  Weight: 61 kg

DRUGS (5)
  1. BRIDION [Suspect]
     Indication: NEUROMUSCULAR BLOCKADE REVERSAL
     Dosage: 122 MG, ONCE (2 MG/KG)
     Route: 042
     Dates: start: 20140117, end: 20140117
  2. ROCURONIUM BROMIDE [Suspect]
     Indication: NEUROMUSCULAR BLOCKADE
     Dosage: 50 ML, ONCE
     Route: 042
     Dates: start: 20140117, end: 20140117
  3. VECURONIUM BROMIDE [Suspect]
     Dosage: 2 MG, BID
     Dates: start: 20140117, end: 20140117
  4. LABETALOL HYDROCHLORIDE [Suspect]
     Indication: HYPERTENSION
     Dosage: 5 MG, UNK
     Route: 042
     Dates: start: 20140117
  5. GLYCOPYRROLATE [Suspect]
     Indication: BRADYCARDIA
     Dosage: 0.2 MG, UNK
     Route: 042
     Dates: start: 20140117

REACTIONS (4)
  - Pneumothorax [Recovered/Resolved]
  - Supraventricular extrasystoles [Recovered/Resolved]
  - Confusional state [Recovered/Resolved]
  - Pyrexia [Recovered/Resolved]
